FAERS Safety Report 6437877-4 (Version None)
Quarter: 2009Q4

REPORT INFORMATION
  Report Type: 
  Country: None (occurrence: None)
  Receive Date: 20091109
  Receipt Date: 20091026
  Transmission Date: 20100525
  Serious: Yes (Hospitalization)
  Sender: FDA-Public Use
  Company Number: 2009FR0040

PATIENT
  Age: 1 Year
  Sex: Female

DRUGS (3)
  1. ORFADIN [Suspect]
     Indication: TYROSINAEMIA
     Dosage: 10 MG ORAL
     Route: 048
     Dates: start: 20080519
  2. SELENIUM (SELENIUM) [Concomitant]
  3. OROCAL (CALCIUM CARBONATE) [Concomitant]

REACTIONS (4)
  - ALANINE AMINOTRANSFERASE INCREASED [None]
  - ASPARTATE AMINOTRANSFERASE INCREASED [None]
  - DUODENAL ULCER [None]
  - PLATELET COUNT INCREASED [None]
